FAERS Safety Report 12244632 (Version 2)
Quarter: 2016Q2

REPORT INFORMATION
  Report Type: Spontaneous
  Country: GB (occurrence: GB)
  Receive Date: 20160407
  Receipt Date: 20160603
  Transmission Date: 20160815
  Serious: Yes (Death, Other)
  Sender: FDA-Public Use
  Company Number: GB-AUROBINDO-AUR-APL-2016-04312

PATIENT
  Age: 50 Year
  Sex: Female

DRUGS (1)
  1. PARACETAMOL [Suspect]
     Active Substance: ACETAMINOPHEN
     Indication: SUICIDE ATTEMPT
     Dosage: 60 TABLETS WITH CHAMPAGNE
     Route: 065

REACTIONS (5)
  - Liver injury [Recovered/Resolved]
  - Suicide attempt [Unknown]
  - Renal injury [Unknown]
  - Death [Fatal]
  - Overdose [Unknown]
